FAERS Safety Report 24811054 (Version 1)
Quarter: 2025Q1

REPORT INFORMATION
  Report Type: Spontaneous
  Country: US (occurrence: US)
  Receive Date: 20250106
  Receipt Date: 20250106
  Transmission Date: 20250408
  Serious: Yes (Other)
  Sender: TOLMAR
  Company Number: US-TOLMAR, INC.-24US054857

PATIENT
  Sex: Male

DRUGS (1)
  1. ELIGARD [Suspect]
     Active Substance: LEUPROLIDE ACETATE
     Indication: Product used for unknown indication

REACTIONS (3)
  - Spinal cord compression [Unknown]
  - Tumour flare [Unknown]
  - Bone pain [Unknown]
